FAERS Safety Report 16665331 (Version 1)
Quarter: 2019Q3

REPORT INFORMATION
  Report Type: Spontaneous
  Country: US (occurrence: US)
  Receive Date: 20190803
  Receipt Date: 20190803
  Transmission Date: 20191004
  Serious: No
  Sender: FDA-Public Use
  Company Number: US-009507513-1907USA016416

PATIENT
  Sex: Female

DRUGS (11)
  1. GONADOTROPIN, CHORIONIC [Concomitant]
     Active Substance: CHORIOGONADOTROPIN ALFA
  2. PROGESTERONE. [Concomitant]
     Active Substance: PROGESTERONE
  3. MENOPUR [Concomitant]
     Active Substance: FOLLITROPIN\LUTEINIZING HORMONE
  4. LEVOTHYROXINE SODIUM. [Concomitant]
     Active Substance: LEVOTHYROXINE SODIUM
  5. GANIRELIX ACETATE INJECTION [Suspect]
     Active Substance: GANIRELIX ACETATE
     Indication: INFERTILITY FEMALE
     Dosage: 250 MICROGRAM, QD  PER CALENDAR
     Route: 058
     Dates: start: 20190409
  6. LEUPROLIDE [Concomitant]
     Active Substance: LEUPROLIDE
  7. FOLLISTIM [Suspect]
     Active Substance: FOLLITROPIN
     Indication: INFERTILITY FEMALE
     Dosage: 450 UNITS, AS DIRECTED
     Route: 058
     Dates: start: 20190409
  8. INSULIN [Concomitant]
     Active Substance: INSULIN NOS
  9. FOLIC ACID. [Concomitant]
     Active Substance: FOLIC ACID
  10. AZITHROMYCIN ANHYDROUS. [Concomitant]
     Active Substance: AZITHROMYCIN ANHYDROUS
  11. DEXAMETHASONE. [Concomitant]
     Active Substance: DEXAMETHASONE

REACTIONS (3)
  - Weight increased [Unknown]
  - Tenderness [Unknown]
  - Nausea [Unknown]

NARRATIVE: CASE EVENT DATE: 2019
